FAERS Safety Report 5079168-2 (Version None)
Quarter: 2006Q3

REPORT INFORMATION
  Report Type: 
  Country: None (occurrence: None)
  Receive Date: 20060814
  Receipt Date: 20060725
  Transmission Date: 20061208
  Serious: Yes (Other)
  Sender: FDA-Public Use
  Company Number: J200602494

PATIENT
  Age: 73 Year
  Sex: Female

DRUGS (3)
  1. SAWACILLIN [Suspect]
     Indication: GASTRIC ULCER
     Dosage: 750U TWICE PER DAY
     Route: 048
     Dates: start: 20060701, end: 20060707
  2. CLARITH [Suspect]
     Indication: GASTRIC ULCER
     Dosage: 200MG TWICE PER DAY
     Route: 048
     Dates: start: 20060701, end: 20060707
  3. TAKEPRON [Concomitant]
     Indication: GASTRIC ULCER
     Dosage: 30MG TWICE PER DAY
     Route: 048
     Dates: start: 20060701, end: 20060707

REACTIONS (3)
  - BLOOD PRESSURE INCREASED [None]
  - RASH [None]
  - TOXIC SKIN ERUPTION [None]
